FAERS Safety Report 14110102 (Version 1)
Quarter: 2017Q4

REPORT INFORMATION
  Report Type: Report from Study
  Country: DE (occurrence: DE)
  Receive Date: 20171020
  Receipt Date: 20171020
  Transmission Date: 20180321
  Serious: Yes (Death, Hospitalization)
  Sender: FDA-Public Use
  Company Number: DE-ROCHE-1526274

PATIENT
  Age: 66 Year
  Sex: Female
  Weight: 51.5 kg

DRUGS (20)
  1. VITAMIN B6 [Concomitant]
     Active Substance: PYRIDOXINE HYDROCHLORIDE
     Route: 042
     Dates: start: 20140429, end: 20140505
  2. DORMICUM (ORAL) [Concomitant]
     Active Substance: MIDAZOLAM MALEATE
     Dosage: ONCE
     Route: 065
     Dates: start: 20140203, end: 20140203
  3. CLEXANE [Concomitant]
     Active Substance: ENOXAPARIN SODIUM
     Route: 058
     Dates: start: 20140203, end: 20140203
  4. TRANXILIUM [Concomitant]
     Active Substance: CLORAZEPATE DIPOTASSIUM
     Dosage: ONCE
     Route: 048
     Dates: start: 20140202, end: 20140202
  5. VITAMIN B12 [Concomitant]
     Active Substance: CYANOCOBALAMIN
     Route: 042
     Dates: start: 20140429, end: 20140505
  6. ARNIKA [Concomitant]
     Indication: NECROSIS
     Dosage: TAKEN AS ARNIKA GLOBULI
     Route: 048
     Dates: start: 20140203, end: 20140203
  7. XELODA [Suspect]
     Active Substance: CAPECITABINE
     Dosage: 1150-2300MG
     Route: 048
     Dates: start: 20140121, end: 20140126
  8. LYRICA [Concomitant]
     Active Substance: PREGABALIN
     Indication: ABDOMINAL PAIN
     Route: 048
     Dates: start: 20140819
  9. NOVALGIN [Concomitant]
     Active Substance: METAMIZOLE SODIUM
     Indication: ABDOMINAL PAIN
     Route: 048
     Dates: start: 20140819
  10. RAMIPRIL. [Concomitant]
     Active Substance: RAMIPRIL
     Indication: HYPERTENSION
     Route: 048
  11. IBUPROFEN. [Concomitant]
     Active Substance: IBUPROFEN
     Indication: CHEST PAIN
     Route: 048
     Dates: start: 20140204, end: 20140208
  12. CEFUROXIM [Concomitant]
     Active Substance: CEFUROXIME
     Dosage: ONCE
     Route: 042
     Dates: start: 20140203, end: 20140203
  13. XELODA [Suspect]
     Active Substance: CAPECITABINE
     Indication: BREAST CANCER
     Dosage: 2300-3000MG
     Route: 048
     Dates: start: 20131008, end: 20140113
  14. LYRICA [Concomitant]
     Active Substance: PREGABALIN
     Indication: CHEST PAIN
  15. IMODIUM [Concomitant]
     Active Substance: LOPERAMIDE HYDROCHLORIDE
     Indication: PROPHYLAXIS
     Route: 048
     Dates: start: 20131007
  16. LEKTINOL [Concomitant]
     Indication: NECROSIS
     Route: 058
     Dates: start: 20140204, end: 20140214
  17. FUROSEMID [Concomitant]
     Active Substance: FUROSEMIDE
     Indication: NECROSIS
     Route: 042
     Dates: start: 20140202, end: 20140202
  18. BEVACIZUMAB. [Suspect]
     Active Substance: BEVACIZUMAB
     Indication: BREAST CANCER
     Route: 042
     Dates: start: 20131122, end: 20140103
  19. PANTOPRAZOL [Concomitant]
     Active Substance: PANTOPRAZOLE SODIUM
     Indication: PROPHYLAXIS
     Route: 048
     Dates: start: 20140204, end: 20140215
  20. NOVALGIN [Concomitant]
     Active Substance: METAMIZOLE SODIUM
     Indication: CHEST PAIN

REACTIONS (2)
  - Malignant neoplasm progression [Fatal]
  - Rash [Recovered/Resolved]

NARRATIVE: CASE EVENT DATE: 20140814
